FAERS Safety Report 18025150 (Version 5)
Quarter: 2020Q4

REPORT INFORMATION
  Report Type: Spontaneous
  Country: US (occurrence: US)
  Receive Date: 20200715
  Receipt Date: 20201002
  Transmission Date: 20210113
  Serious: No
  Sender: FDA-Public Use
  Company Number: US-GLAXOSMITHKLINE-US2020AMR130823

PATIENT
  Sex: Female

DRUGS (3)
  1. ZEJULA [Suspect]
     Active Substance: NIRAPARIB
     Dosage: 100 MG, QD
     Route: 048
  2. ZEJULA [Suspect]
     Active Substance: NIRAPARIB
     Dosage: 200 MG, QD
     Route: 048
  3. ZEJULA [Suspect]
     Active Substance: NIRAPARIB
     Indication: OVARIAN CANCER
     Dosage: 200 MG, QD
     Route: 048
     Dates: start: 20200709

REACTIONS (13)
  - Muscle twitching [Unknown]
  - Dyspepsia [Unknown]
  - Lethargy [Unknown]
  - Adverse drug reaction [Unknown]
  - Blood pressure increased [Not Recovered/Not Resolved]
  - Carbohydrate antigen 125 increased [Unknown]
  - Dehydration [Unknown]
  - Feeling abnormal [Unknown]
  - Early satiety [Unknown]
  - Platelet count decreased [Unknown]
  - Insomnia [Unknown]
  - Dizziness [Recovering/Resolving]
  - Tumour marker increased [Unknown]
